FAERS Safety Report 14511899 (Version 1)
Quarter: 2018Q1

REPORT INFORMATION
  Report Type: Spontaneous
  Country: TR (occurrence: TR)
  Receive Date: 20180209
  Receipt Date: 20180209
  Transmission Date: 20180509
  Serious: Yes (Other)
  Sender: FDA-Public Use
  Company Number: TR-IMPAX LABORATORIES, INC-2018-IPXL-00372

PATIENT
  Age: 2 Week
  Sex: Male

DRUGS (7)
  1. GLYBURIDE. [Suspect]
     Active Substance: GLYBURIDE
     Dosage: 1 MG/KG, DAILY
     Route: 048
  2. GLYBURIDE. [Suspect]
     Active Substance: GLYBURIDE
     Indication: PRODUCT USE IN UNAPPROVED INDICATION
     Dosage: GRADUALLY INCREASED, UNK
     Route: 048
  3. INSULIN [Concomitant]
     Active Substance: INSULIN NOS
     Dosage: 0.6 IU/KG, DAILY
     Route: 065
  4. INSULIN [Concomitant]
     Active Substance: INSULIN NOS
     Dosage: TITRATED, UNK, INJECTIONS
     Route: 058
  5. GLYBURIDE. [Suspect]
     Active Substance: GLYBURIDE
     Indication: NEONATAL DIABETES MELLITUS
     Dosage: 0.1 MG/KG, DAILY
     Route: 048
  6. INSULIN [Concomitant]
     Active Substance: INSULIN NOS
     Indication: NEONATAL DIABETES MELLITUS
     Dosage: 0.3 IU/KG, DAILY, INFUSION
     Route: 065
  7. INSULIN [Concomitant]
     Active Substance: INSULIN NOS
     Dosage: 4 IU/KG, DAILY
     Route: 065

REACTIONS (3)
  - Product use issue [Unknown]
  - Drug ineffective for unapproved indication [Unknown]
  - Insulin resistance [Recovered/Resolved]
